FAERS Safety Report 6294751-4 (Version None)
Quarter: 2009Q3

REPORT INFORMATION
  Report Type: 
  Country: None (occurrence: None)
  Receive Date: 20090731
  Receipt Date: 20090731
  Transmission Date: 20100115
  Serious: Yes (Other)
  Sender: FDA-Public Use
  Company Number: None

PATIENT
  Age: 57 Year
  Sex: Female
  Weight: 90.7194 kg

DRUGS (1)
  1. NASCOBAL [Suspect]
     Indication: VITAMIN B12 DECREASED
     Dosage: 500 MCG ONCE A WEEK NASAL
     Route: 045
     Dates: start: 20090722, end: 20090728

REACTIONS (3)
  - ACTIVITIES OF DAILY LIVING IMPAIRED [None]
  - GAIT DISTURBANCE [None]
  - MYALGIA [None]
